FAERS Safety Report 6095444-9 (Version None)
Quarter: 2009Q1

REPORT INFORMATION
  Report Type: 
  Country: None (occurrence: None)
  Receive Date: 20090227
  Receipt Date: 20080402
  Transmission Date: 20090719
  Serious: No
  Sender: FDA-Public Use
  Company Number: A0718961A

PATIENT
  Age: 17 Year
  Sex: Female

DRUGS (3)
  1. LAMICTAL [Suspect]
     Indication: BIPOLAR DISORDER
     Dosage: 100MG PER DAY
     Route: 048
     Dates: start: 20050101, end: 20070101
  2. LAMICTAL [Suspect]
     Dosage: 100MG PER DAY
     Route: 048
  3. NO CONCURRENT MEDICATION [Concomitant]

REACTIONS (4)
  - DRY THROAT [None]
  - FOREIGN BODY TRAUMA [None]
  - NAUSEA [None]
  - PRODUCT QUALITY ISSUE [None]
